FAERS Safety Report 8317496-5 (Version None)
Quarter: 2012Q1

REPORT INFORMATION
  Report Type: 
  Country: None (occurrence: None)
  Receive Date: 20120315
  Receipt Date: 20110510
  Transmission Date: 20120608
  Serious: No
  Sender: FDA-Public Use
  Company Number: PHHY2011US32350

PATIENT
  Age: 47 Year
  Sex: Female
  Weight: 62.6 kg

DRUGS (6)
  1. GILENYA [Suspect]
     Indication: MULTIPLE SCLEROSIS
     Dosage: 0.5 MG, QD, ORAL
     Route: 048
     Dates: start: 20110411
  2. LIMBITROL (AMITRIPTYLINE HYDROCHLORIDE, CHLORDIAZEPOXIDE) [Concomitant]
  3. NAMENDA [Concomitant]
  4. CYMBALTA [Concomitant]
  5. KEPPRA [Concomitant]
  6. AMBIEN CR [Concomitant]

REACTIONS (6)
  - FATIGUE [None]
  - NAUSEA [None]
  - INSOMNIA [None]
  - FLATULENCE [None]
  - VISION BLURRED [None]
  - DIZZINESS [None]
